FAERS Safety Report 11625039 (Version 1)
Quarter: 2015Q4

REPORT INFORMATION
  Report Type: Other
  Country: IL (occurrence: IL)
  Receive Date: 20151013
  Receipt Date: 20151013
  Transmission Date: 20160304
  Serious: Yes (Hospitalization)
  Sender: FDA-Public Use
  Company Number: IL-B. BRAUN MEDICAL INC.-1042868

PATIENT
  Age: 81 Year
  Sex: Female

DRUGS (6)
  1. INSULIN [Concomitant]
     Active Substance: INSULIN NOS
  2. SIMVASTATIN. [Concomitant]
     Active Substance: SIMVASTATIN
  3. CEFTRIAXONE. [Concomitant]
     Active Substance: CEFTRIAXONE
  4. AZITHROMYCIN [Concomitant]
     Active Substance: AZITHROMYCIN ANHYDROUS
  5. CLONIDINE. [Concomitant]
     Active Substance: CLONIDINE
  6. SODIUM CHLORIDE. [Suspect]
     Active Substance: SODIUM CHLORIDE
     Route: 042

REACTIONS (1)
  - Hypertension [None]
